FAERS Safety Report 13127649 (Version 1)
Quarter: 2017Q1

REPORT INFORMATION
  Report Type: Spontaneous
  Country: PL (occurrence: PL)
  Receive Date: 20170118
  Receipt Date: 20170118
  Transmission Date: 20170428
  Serious: Yes (Hospitalization)
  Sender: FDA-Public Use
  Company Number: PL-MYLANLABS-2017M1002458

PATIENT

DRUGS (5)
  1. DABIGATRAN [Suspect]
     Active Substance: DABIGATRAN
     Indication: THROMBOSIS PROPHYLAXIS
     Dosage: 150 MG, BID
  2. VALSARTAN. [Suspect]
     Active Substance: VALSARTAN
     Indication: PRODUCT USED FOR UNKNOWN INDICATION
     Dosage: UNK
  3. GLICLAZIDE [Suspect]
     Active Substance: GLICLAZIDE
     Indication: PRODUCT USED FOR UNKNOWN INDICATION
     Dosage: UNK
  4. METOPROLOL. [Suspect]
     Active Substance: METOPROLOL
     Indication: PRODUCT USED FOR UNKNOWN INDICATION
     Dosage: UNK
  5. METFORMIN [Suspect]
     Active Substance: METFORMIN HYDROCHLORIDE
     Indication: PRODUCT USED FOR UNKNOWN INDICATION
     Dosage: UNK

REACTIONS (4)
  - Groin pain [Unknown]
  - Cardiac murmur [Unknown]
  - Vascular pseudoaneurysm [Unknown]
  - Contusion [Unknown]
